FAERS Safety Report 9161213 (Version 3)
Quarter: 2013Q2

REPORT INFORMATION
  Report Type: Spontaneous
  Country: ES (occurrence: ES)
  Receive Date: 20130313
  Receipt Date: 20130410
  Transmission Date: 20140414
  Serious: Yes (Death, Other)
  Sender: FDA-Public Use
  Company Number: ES-MERCK-1302ESP007679

PATIENT
  Age: 68 Year
  Sex: Male

DRUGS (10)
  1. NOXAFIL [Suspect]
     Indication: ANTIFUNGAL PROPHYLAXIS
     Dosage: 200 MG, STRENGTH
     Route: 048
     Dates: start: 20130206, end: 20130211
  2. IDARUBICIN HYDROCHLORIDE [Concomitant]
     Indication: ACUTE MYELOID LEUKAEMIA
     Dosage: 12 MG/M2, QD
     Dates: start: 20130130, end: 20130201
  3. CYTARABINE [Concomitant]
     Indication: ACUTE MYELOID LEUKAEMIA
     Dosage: 200 MG/M2, QD, ROUTE:CONTINUOUS INFUSION
     Dates: start: 20130130, end: 20130205
  4. FILGRASTIM [Concomitant]
     Indication: CSF GRANULOCYTE COUNT ABNORMAL
     Dosage: UNK, QD
     Dates: start: 20130129, end: 20130205
  5. LEVOFLOXACIN [Concomitant]
     Dosage: UNK
     Dates: start: 20130130
  6. FLUCONAZOLE [Concomitant]
     Dosage: UNK
     Dates: start: 20130130, end: 20130205
  7. ALLOPURINOL [Concomitant]
     Dosage: UNK
     Dates: start: 20130130
  8. OMEPRAZOLE [Concomitant]
     Dosage: UNK
     Dates: start: 20130130
  9. ACETAMINOPHEN [Concomitant]
     Indication: PYREXIA
  10. CHLORHEXIDINE HYDROCHLORIDE [Concomitant]
     Dosage: ROUTE: MOUTH WASH
     Dates: start: 20130130

REACTIONS (8)
  - Death [Fatal]
  - Sepsis [Not Recovered/Not Resolved]
  - Respiratory failure [Not Recovered/Not Resolved]
  - Blood bilirubin increased [Recovering/Resolving]
  - Blood lactic acid increased [Not Recovered/Not Resolved]
  - Gastrointestinal necrosis [Not Recovered/Not Resolved]
  - Nuchal rigidity [Unknown]
  - Depressed level of consciousness [Unknown]
